FAERS Safety Report 7812697-4 (Version None)
Quarter: 2011Q4

REPORT INFORMATION
  Report Type: 
  Country: None (occurrence: None)
  Receive Date: 20111011
  Receipt Date: 20110929
  Transmission Date: 20120403
  Serious: Yes (Life-Threatening, Other)
  Sender: FDA-Public Use
  Company Number: FK201102071

PATIENT
  Age: 26 Year
  Sex: Female

DRUGS (7)
  1. CYCLOPHOSHAMIDE (MANUFACTURER UNKNOWN) (CYCLOPHOSPHAMIDE) (CYCLOPHOSPH [Concomitant]
  2. ORAL STEROIDS [Concomitant]
  3. METHYLPREDNISOLONE [Suspect]
     Indication: ANTI-NEUTROPHIL CYTOPLASMIC ANTIBODY POSITIVE VASCULITIS
     Dosage: 500 MG, PULSED IV AND DAILY FOR 3 DAYS, INTRAVENOUS (NOT OTHERWISE SPECIFIED)
     Route: 042
  4. RITUXIMAB (RITUXIMAB) [Concomitant]
  5. CYCLOSPORINE [Concomitant]
  6. INFLIXIMAB (INFLIXIMAB) [Concomitant]
  7. CAMPATH [Concomitant]

REACTIONS (7)
  - BRONCHOSTENOSIS [None]
  - NASAL SEPTUM DEVIATION [None]
  - BRONCHIECTASIS [None]
  - OESOPHAGEAL CANDIDIASIS [None]
  - LOWER RESPIRATORY TRACT INFECTION [None]
  - PNEUMOTHORAX [None]
  - HEARING IMPAIRED [None]
